FAERS Safety Report 8289215-2 (Version None)
Quarter: 2012Q2

REPORT INFORMATION
  Report Type: 
  Country: None (occurrence: None)
  Receive Date: 20120417
  Receipt Date: 20120409
  Transmission Date: 20120825
  Serious: Yes (Hospitalization, Other)
  Sender: FDA-Public Use
  Company Number: PHHY2011CA75755

PATIENT
  Sex: Male

DRUGS (7)
  1. SANDOSTATIN LAR [Suspect]
     Indication: CARCINOID TUMOUR
     Dosage: 30 MG, QMO
     Route: 030
     Dates: start: 20110725
  2. LANSOPRAZOLE [Concomitant]
  3. TERAZOSIN HCL [Concomitant]
  4. SYNTHROID [Concomitant]
  5. LASIX [Concomitant]
  6. HYZAAR [Concomitant]
  7. FLOMAX [Concomitant]

REACTIONS (11)
  - PNEUMONIA [None]
  - GALLBLADDER DISORDER [None]
  - PLEURAL EFFUSION [None]
  - PAIN [None]
  - BLOOD PRESSURE INCREASED [None]
  - LUNG INFECTION [None]
  - ABDOMINAL PAIN [None]
  - CHEST PAIN [None]
  - BACK PAIN [None]
  - PULMONARY OEDEMA [None]
  - MUSCULOSKELETAL PAIN [None]
